FAERS Safety Report 22636413 (Version 4)
Quarter: 2025Q3

REPORT INFORMATION
  Report Type: Spontaneous
  Country: US (occurrence: US)
  Receive Date: 20230623
  Receipt Date: 20250930
  Transmission Date: 20251021
  Serious: No
  Sender: PFIZER
  Company Number: US-PFIZER INC-PV202300107095

PATIENT
  Age: 65 Year
  Sex: Male

DRUGS (1)
  1. XELJANZ XR [Suspect]
     Active Substance: TOFACITINIB CITRATE

REACTIONS (5)
  - Feeling abnormal [Unknown]
  - Staphylococcal infection [Not Recovered/Not Resolved]
  - Pain [Unknown]
  - Nervousness [Unknown]
  - Tremor [Unknown]
